FAERS Safety Report 19911621 (Version 1)
Quarter: 2021Q4

REPORT INFORMATION
  Report Type: Spontaneous
  Country: US (occurrence: US)
  Receive Date: 20211002
  Receipt Date: 20211002
  Transmission Date: 20220303
  Serious: No
  Sender: FDA-Public Use
  Company Number: None

PATIENT
  Age: 7 Year
  Sex: Female
  Weight: 27 kg

DRUGS (1)
  1. COPPERTONE PURE AND SIMPLE KIDS SPF 50 [Suspect]
     Active Substance: ZINC OXIDE
     Indication: Prophylaxis against solar radiation
     Dosage: ?          OTHER STRENGTH:5 OZ CAN;
     Route: 061
     Dates: start: 20210601, end: 20210731

REACTIONS (6)
  - Skin reaction [None]
  - Erythema [None]
  - Urticaria [None]
  - Urticaria [None]
  - Pruritus [None]
  - Skin burning sensation [None]

NARRATIVE: CASE EVENT DATE: 20210714
